FAERS Safety Report 4421559-4 (Version None)
Quarter: 2004Q3

REPORT INFORMATION
  Report Type: 
  Country: None (occurrence: None)
  Receive Date: 20040809
  Receipt Date: 20040809
  Transmission Date: 20050211
  Serious: No
  Sender: FDA-Public Use
  Company Number: None

PATIENT
  Age: 51 Year
  Sex: Male

DRUGS (1)
  1. ABACAVIR [Suspect]
     Indication: URTICARIA
     Dosage: 300 MG BID
     Dates: start: 20040218, end: 20040221

REACTIONS (9)
  - ABDOMINAL PAIN [None]
  - BRADYCARDIA [None]
  - DIARRHOEA [None]
  - DRUG HYPERSENSITIVITY [None]
  - DYSPNOEA [None]
  - FATIGUE [None]
  - HYPOTENSION [None]
  - NAUSEA [None]
  - PYREXIA [None]
